FAERS Safety Report 6930479-2 (Version None)
Quarter: 2010Q3

REPORT INFORMATION
  Report Type: 
  Country: None (occurrence: None)
  Receive Date: 20100818
  Receipt Date: 20100806
  Transmission Date: 20110219
  Serious: Yes (Hospitalization)
  Sender: FDA-Public Use
  Company Number: A0808137A

PATIENT
  Age: 65 Year
  Sex: Male
  Weight: 113.6 kg

DRUGS (9)
  1. AVANDIA [Suspect]
     Indication: TYPE 2 DIABETES MELLITUS
     Dosage: 8MG PER DAY
     Route: 048
     Dates: start: 20010101, end: 20070101
  2. LOZOL [Concomitant]
  3. CELEBREX [Concomitant]
  4. CLONIDINE [Concomitant]
  5. ASTELIN [Concomitant]
  6. PROTONIX [Concomitant]
  7. BENICAR [Concomitant]
  8. ALLOPURINOL [Concomitant]
  9. TOPROL-XL [Concomitant]

REACTIONS (6)
  - ATRIAL FIBRILLATION [None]
  - CARDIAC FAILURE CONGESTIVE [None]
  - RENAL FAILURE CHRONIC [None]
  - RENAL INJURY [None]
  - RENAL MASS [None]
  - STENT PLACEMENT [None]
